FAERS Safety Report 4278935-2 (Version None)
Quarter: 2004Q1

REPORT INFORMATION
  Report Type: 
  Country: None (occurrence: None)
  Receive Date: 20040126
  Receipt Date: 20031204
  Transmission Date: 20041129
  Serious: Yes (Death, Other)
  Sender: FDA-Public Use
  Company Number: FR-BRISTOL-MYERS SQUIBB COMPANY-12450409

PATIENT
  Age: 61 Year
  Sex: Female

DRUGS (6)
  1. TAXOL [Suspect]
     Indication: OVARIAN CANCER
     Dosage: LOT NUMBERS: ONE VIAL 30 MG = 3K72842 AND 3 VIALS 100 MG = 3K72845
     Route: 042
     Dates: start: 20031203, end: 20031203
  2. SOLU-MEDROL [Concomitant]
     Indication: PREMEDICATION
     Route: 042
     Dates: start: 20031203, end: 20031203
  3. SOLU-MEDROL [Concomitant]
     Route: 048
     Dates: start: 20031202, end: 20031202
  4. POLARAMINE [Concomitant]
     Indication: PREMEDICATION
     Route: 042
     Dates: start: 20031203, end: 20031203
  5. ZANTAC [Concomitant]
     Indication: PREMEDICATION
     Route: 042
     Dates: start: 20031203, end: 20031203
  6. ONDANSETRON HCL [Concomitant]
     Indication: PREMEDICATION
     Route: 042
     Dates: start: 20031203, end: 20031203

REACTIONS (1)
  - CARDIOGENIC SHOCK [None]
